APPROVED DRUG PRODUCT: DEAPRIL-ST
Active Ingredient: ERGOLOID MESYLATES
Strength: 1MG
Dosage Form/Route: TABLET;SUBLINGUAL
Application: A085020 | Product #002
Applicant: BRISTOL MYERS SQUIBB CO PHARMACEUTICAL RESEARCH INSTITUTE
Approved: Approved Prior to Jan 1, 1982 | RLD: No | RS: No | Type: DISCN